FAERS Safety Report 6061463-1 (Version None)
Quarter: 2009Q1

REPORT INFORMATION
  Report Type: 
  Country: None (occurrence: None)
  Receive Date: 20090202
  Receipt Date: 20090127
  Transmission Date: 20090719
  Serious: Yes (Congenital Anomaly)
  Sender: FDA-Public Use
  Company Number: US-JNJFOC-20081204140

PATIENT
  Sex: Male
  Weight: 2.32 kg

DRUGS (3)
  1. TOPAMAX [Suspect]
     Indication: DRUG USE FOR UNKNOWN INDICATION
  2. MIDRIN [Suspect]
     Indication: DRUG EXPOSURE DURING PREGNANCY
  3. WELLBUTRIN [Suspect]
     Indication: DRUG EXPOSURE DURING PREGNANCY

REACTIONS (9)
  - ATRIAL SEPTAL DEFECT [None]
  - CONGENITAL ANOMALY [None]
  - CRYPTORCHISM [None]
  - DYSPHAGIA [None]
  - EAR MALFORMATION [None]
  - FOETAL GROWTH RETARDATION [None]
  - GASTROOESOPHAGEAL REFLUX DISEASE [None]
  - HIGH ARCHED PALATE [None]
  - MULTIPLE EPIPHYSEAL DYSPLASIA [None]
